FAERS Safety Report 7802174-9 (Version None)
Quarter: 2011Q4

REPORT INFORMATION
  Report Type: 
  Country: None (occurrence: None)
  Receive Date: 20111007
  Receipt Date: 20111003
  Transmission Date: 20120403
  Serious: No
  Sender: FDA-Public Use
  Company Number: US-PFIZER INC-2011236639

PATIENT
  Sex: Male

DRUGS (2)
  1. DOXYCYCLINE HYCLATE [Suspect]
     Indication: ACNE
     Dosage: UNK
  2. MINOCIN [Concomitant]
     Indication: ACNE
     Dosage: UNK
     Dates: start: 20110701

REACTIONS (1)
  - GASTROINTESTINAL DISORDER [None]
